FAERS Safety Report 5652626-5 (Version None)
Quarter: 2008Q1

REPORT INFORMATION
  Report Type: 
  Country: None (occurrence: None)
  Receive Date: 20080131
  Receipt Date: 20071226
  Transmission Date: 20080703
  Serious: No
  Sender: FDA-Public Use
  Company Number: US200710004532

PATIENT
  Age: 50 Year
  Sex: Female
  Weight: 93.9 kg

DRUGS (10)
  1. BYETTA [Suspect]
     Dosage: 5 UG, 2/D, SUBCUTANEOUS ; 10 UG, 2/D, SUBCUTANEOUS
     Route: 058
     Dates: start: 20070801, end: 20071001
  2. BYETTA [Suspect]
     Dosage: 5 UG, 2/D, SUBCUTANEOUS ; 10 UG, 2/D, SUBCUTANEOUS
     Route: 058
     Dates: start: 20071001, end: 20071001
  3. AVAPRO [Concomitant]
  4. CALCIUM W/VITAMIN D NOS (CALCIUM, VITAMIN D NOS) TABLET [Concomitant]
  5. FLUOXETINE (FLUOXETINE) CAPSULE [Concomitant]
  6. METFORMIN HCL [Concomitant]
  7. MULTIVITAMIN (VITAMINS NOS) TABLET [Concomitant]
  8. OMEGA 3 (FISH OIL) CAPSULE [Concomitant]
  9. VITAMIN E/00110502/ (TOCOPHEROL ACETATE) [Concomitant]
  10. VYTORIN [Concomitant]

REACTIONS (7)
  - DIVERTICULUM [None]
  - HYDRONEPHROSIS [None]
  - MALAISE [None]
  - PERICARDIAL EFFUSION [None]
  - PLEURAL EFFUSION [None]
  - RETROPERITONEAL EFFUSION [None]
  - WEIGHT DECREASED [None]
